FAERS Safety Report 5636051-9 (Version None)
Quarter: 2008Q1

REPORT INFORMATION
  Report Type: 
  Country: None (occurrence: None)
  Receive Date: 20080225
  Receipt Date: 20080220
  Transmission Date: 20080703
  Serious: Yes (Hospitalization, Other)
  Sender: FDA-Public Use
  Company Number: AU-WYE-G01098308

PATIENT
  Sex: Male

DRUGS (1)
  1. EFFEXOR XR [Suspect]
     Route: 048

REACTIONS (3)
  - AGGRESSION [None]
  - AGITATION [None]
  - INTENTIONAL SELF-INJURY [None]
